FAERS Safety Report 25842091 (Version 1)
Quarter: 2025Q3

REPORT INFORMATION
  Report Type: Other
  Country: US (occurrence: US)
  Receive Date: 20250924
  Receipt Date: 20250924
  Transmission Date: 20251021
  Serious: No
  Sender: SIGMA TAU
  Company Number: US-LEADIANT BIOSCIENCES, INC.-2025LBI000001

PATIENT
  Sex: Female

DRUGS (2)
  1. MATULANE [Suspect]
     Active Substance: PROCARBAZINE HYDROCHLORIDE
     Indication: Brain neoplasm malignant
     Route: 048
     Dates: start: 20240203
  2. GABAPENTIN [Concomitant]
     Active Substance: GABAPENTIN

REACTIONS (7)
  - Fatigue [Unknown]
  - Nausea [Unknown]
  - Diarrhoea [Unknown]
  - Headache [Unknown]
  - Nerve injury [Unknown]
  - Vomiting [Unknown]
  - Product dose omission issue [Unknown]
